FAERS Safety Report 15000589 (Version 1)
Quarter: 2018Q2

REPORT INFORMATION
  Report Type: Spontaneous
  Country: DE (occurrence: DE)
  Receive Date: 20180612
  Receipt Date: 20180612
  Transmission Date: 20180711
  Serious: Yes (Hospitalization)
  Sender: FDA-Public Use
  Company Number: DE-TEVA-2018-DE-905807

PATIENT
  Age: 67 Year
  Sex: Male

DRUGS (6)
  1. DOCITON 10MG [Concomitant]
     Dosage: 10 MG, 1-1-1-0
  2. PANTOPRAZOL [Concomitant]
     Active Substance: PANTOPRAZOLE SODIUM
     Dosage: 1-0-0-0
  3. SPIRONOLACTON [Concomitant]
     Active Substance: SPIRONOLACTONE
     Dosage: 100 MG, 1-0-0-0
  4. FLUOROURACIL. [Suspect]
     Active Substance: FLUOROURACIL
     Dosage: NK MG, NK
     Route: 065
  5. FORMOTEROL HEXAL EASYHALER 12MIKROGRAMM/DOSIS [Concomitant]
     Dosage: 1-0-0-0
  6. TORASEMID [Concomitant]
     Active Substance: TORSEMIDE
     Dosage: 1-0-0-0

REACTIONS (4)
  - General physical health deterioration [Unknown]
  - Vomiting [Unknown]
  - Condition aggravated [Unknown]
  - Decreased appetite [Unknown]
